FAERS Safety Report 17725746 (Version 6)
Quarter: 2020Q4

REPORT INFORMATION
  Report Type: Other
  Country: CN (occurrence: CN)
  Receive Date: 20200429
  Receipt Date: 20201230
  Transmission Date: 20210113
  Serious: Yes (Other)
  Sender: FDA-Public Use
  Company Number: CN-ROCHE-2578858

PATIENT
  Age: 50 Year

DRUGS (2)
  1. VEMURAFENIB. [Suspect]
     Active Substance: VEMURAFENIB
     Indication: MALIGNANT MELANOMA
     Route: 048
     Dates: start: 20200121, end: 20200321
  2. VEMURAFENIB. [Suspect]
     Active Substance: VEMURAFENIB
     Route: 048
     Dates: start: 20200102, end: 20200115

REACTIONS (10)
  - Hypocalcaemia [Recovered/Resolved]
  - Musculoskeletal chest pain [Unknown]
  - Pleural effusion [Unknown]
  - Hypercholesterolaemia [Unknown]
  - Hypertriglyceridaemia [Unknown]
  - Hyponatraemia [Unknown]
  - Somnolence [Unknown]
  - Localised oedema [Unknown]
  - Hypokalaemia [Recovered/Resolved]
  - Rash pustular [Unknown]

NARRATIVE: CASE EVENT DATE: 20200108
